FAERS Safety Report 26203451 (Version 1)
Quarter: 2025Q4

REPORT INFORMATION
  Report Type: Spontaneous
  Country: US (occurrence: None)
  Receive Date: 20251223
  Receipt Date: 20251223
  Transmission Date: 20260118
  Serious: Yes (Hospitalization)
  Sender: FDA-CTU
  Company Number: None

PATIENT
  Age: 67 Year
  Sex: Female

DRUGS (2)
  1. TYMLOS [Suspect]
     Active Substance: ABALOPARATIDE
     Indication: Osteoporosis
     Dosage: 80 UG MICROGRAM(S) DAILY SUBCUTANEOUS
     Route: 058
     Dates: start: 20241007
  2. BACLOFEN [Suspect]
     Active Substance: BACLOFEN

REACTIONS (4)
  - Pulmonary embolism [None]
  - Drug interaction [None]
  - Somnolence [None]
  - Fall [None]

NARRATIVE: CASE EVENT DATE: 20251128
